FAERS Safety Report 13113876 (Version 2)
Quarter: 2017Q1

REPORT INFORMATION
  Report Type: Report from Study
  Country: US (occurrence: US)
  Receive Date: 20170113
  Receipt Date: 20170328
  Transmission Date: 20170428
  Serious: Yes (Other)
  Sender: FDA-Public Use
  Company Number: US-JNJFOC-20170106447

PATIENT
  Sex: Female
  Weight: 62.6 kg

DRUGS (12)
  1. STELARA [Suspect]
     Active Substance: USTEKINUMAB
     Indication: PSORIATIC ARTHROPATHY
     Route: 058
     Dates: start: 20150315, end: 20160330
  2. CLOMID [Concomitant]
     Active Substance: CLOMIPHENE CITRATE
     Route: 048
     Dates: start: 20160414, end: 20160418
  3. HUMAN CHORIONIC GONADOTROPIN [Concomitant]
     Active Substance: GONADOTROPHIN, CHORIONIC
     Dosage: 250 MCG
     Route: 065
     Dates: start: 20160415, end: 20160415
  4. IRON [Concomitant]
     Active Substance: IRON
     Dosage: 1 PILL PER DAY
     Route: 048
     Dates: start: 20160901, end: 20161201
  5. ZOLOFT [Concomitant]
     Active Substance: SERTRALINE HYDROCHLORIDE
     Indication: DEPRESSION
     Route: 048
     Dates: start: 20161010, end: 20161017
  6. METFORMIN HCL [Concomitant]
     Active Substance: METFORMIN HYDROCHLORIDE
     Indication: POLYCYSTIC OVARIES
     Route: 048
     Dates: start: 20160404, end: 20160820
  7. TYLENOL [Concomitant]
     Active Substance: ACETAMINOPHEN
     Indication: HEADACHE
     Dosage: 2 PILL
     Route: 048
     Dates: start: 20160404, end: 20170117
  8. CAFFEINE. [Concomitant]
     Active Substance: CAFFEINE
     Dosage: 1 SERVING PER DAY
     Route: 048
     Dates: start: 20160404, end: 20170117
  9. STELARA [Suspect]
     Active Substance: USTEKINUMAB
     Indication: PSORIASIS
     Route: 058
     Dates: start: 20150315, end: 20160330
  10. ZOLOFT [Concomitant]
     Active Substance: SERTRALINE HYDROCHLORIDE
     Indication: DEPRESSION
     Route: 048
     Dates: start: 20161101, end: 20161107
  11. ZOLOFT [Concomitant]
     Active Substance: SERTRALINE HYDROCHLORIDE
     Indication: DEPRESSION
     Route: 048
     Dates: start: 20161018, end: 20161031
  12. ZOLOFT [Concomitant]
     Active Substance: SERTRALINE HYDROCHLORIDE
     Indication: DEPRESSION
     Route: 048
     Dates: start: 20160404, end: 20161003

REACTIONS (2)
  - Exposure during pregnancy [Recovered/Resolved]
  - Fungal infection [Unknown]

NARRATIVE: CASE EVENT DATE: 2016
